FAERS Safety Report 5934352-8 (Version None)
Quarter: 2008Q4

REPORT INFORMATION
  Report Type: 
  Country: None (occurrence: None)
  Receive Date: 20081029
  Receipt Date: 20081021
  Transmission Date: 20090506
  Serious: Yes (Other)
  Sender: FDA-Public Use
  Company Number: PHHY2008JP24180

PATIENT
  Age: 12 Year
  Sex: Male

DRUGS (3)
  1. CYCLOSPORINE [Suspect]
     Indication: NEPHRITIC SYNDROME
     Dosage: 50 MG/DAY
  2. CYCLOSPORINE [Suspect]
     Dosage: 60 MG/DAY
  3. CYCLOSPORINE [Suspect]
     Dosage: 25 MG/DAY

REACTIONS (3)
  - FALL [None]
  - GAIT DISTURBANCE [None]
  - RHABDOMYOLYSIS [None]
